FAERS Safety Report 25005717 (Version 2)
Quarter: 2025Q2

REPORT INFORMATION
  Report Type: Spontaneous
  Country: US (occurrence: US)
  Receive Date: 20250224
  Receipt Date: 20250604
  Transmission Date: 20250716
  Serious: No
  Sender: NOVARTIS
  Company Number: US-002147023-NVSC2025US029131

PATIENT
  Age: 77 Year
  Sex: Female
  Weight: 99.32 kg

DRUGS (1)
  1. PIQRAY [Suspect]
     Active Substance: ALPELISIB
     Indication: Breast cancer
     Dosage: 250 MG, QD
     Route: 048
     Dates: start: 20240612

REACTIONS (3)
  - Rash papular [Unknown]
  - Pruritus [Unknown]
  - Localised infection [Unknown]

NARRATIVE: CASE EVENT DATE: 20250210
